FAERS Safety Report 24836189 (Version 1)
Quarter: 2025Q1

REPORT INFORMATION
  Report Type: Spontaneous
  Country: KR (occurrence: KR)
  Receive Date: 20250113
  Receipt Date: 20250113
  Transmission Date: 20250409
  Serious: Yes (Other)
  Sender: SANOFI AVENTIS
  Company Number: KR-SA-2025SA008512

PATIENT
  Age: 49 Year
  Sex: Male

DRUGS (2)
  1. TOUJEO [Suspect]
     Active Substance: INSULIN GLARGINE
     Indication: Diabetes mellitus
     Dosage: 14 IU, QD
     Route: 065
     Dates: start: 20230731
  2. UNSPECIFIED INGREDIENT [Suspect]
     Active Substance: UNSPECIFIED INGREDIENT
     Indication: Diabetes mellitus
     Dosage: 04 IU, TID
     Route: 065
     Dates: start: 20230701, end: 20230903

REACTIONS (2)
  - Depressed level of consciousness [Recovered/Resolved]
  - Hypoglycaemia [Recovered/Resolved]

NARRATIVE: CASE EVENT DATE: 20230903
